FAERS Safety Report 9731527 (Version 1)
Quarter: 2013Q4

REPORT INFORMATION
  Report Type: Spontaneous
  Country: US (occurrence: US)
  Receive Date: 20131203
  Receipt Date: 20131203
  Transmission Date: 20140711
  Serious: Yes (Other)
  Sender: FDA-Public Use
  Company Number: US-GILEAD-2008-0017752

PATIENT
  Age: 41 Year
  Sex: Female

DRUGS (3)
  1. TENOFOVIR DISOPROXIL FUMARATE [Suspect]
     Indication: HIV INFECTION
     Dates: end: 20080319
  2. ETRAVIRINE [Concomitant]
     Indication: HIV INFECTION
     Dates: start: 20080304, end: 20080319
  3. RALTEGRAVIR [Concomitant]
     Indication: HIV INFECTION
     Dates: end: 20080319

REACTIONS (1)
  - Rash [Recovered/Resolved]
